FAERS Safety Report 18643839 (Version 5)
Quarter: 2021Q4

REPORT INFORMATION
  Report Type: Spontaneous
  Country: JP (occurrence: JP)
  Receive Date: 20201221
  Receipt Date: 20211020
  Transmission Date: 20220303
  Serious: Yes (Hospitalization)
  Sender: FDA-Public Use
  Company Number: JP-EISAI-202008189_FYC_P_1

PATIENT
  Age: 6 Year

DRUGS (3)
  1. FYCOMPA [Suspect]
     Active Substance: PERAMPANEL
     Indication: Tonic convulsion
     Route: 048
     Dates: start: 20201005, end: 20201101
  2. FYCOMPA [Suspect]
     Active Substance: PERAMPANEL
     Route: 048
     Dates: start: 20201102, end: 20201115
  3. DEPAKENE [Concomitant]
     Active Substance: VALPROIC ACID
     Indication: Epilepsy
     Route: 048
     Dates: start: 20161104

REACTIONS (3)
  - Petit mal epilepsy [Recovering/Resolving]
  - Epilepsy [Unknown]
  - Product administered to patient of inappropriate age [Recovering/Resolving]

NARRATIVE: CASE EVENT DATE: 20200101
